FAERS Safety Report 5233038-5 (Version None)
Quarter: 2007Q1

REPORT INFORMATION
  Report Type: 
  Country: None (occurrence: None)
  Receive Date: 20070207
  Receipt Date: 20070126
  Transmission Date: 20070707
  Serious: Yes (Hospitalization)
  Sender: FDA-Public Use
  Company Number: AT-PFIZER INC-2007008112

PATIENT
  Sex: Male
  Weight: 110 kg

DRUGS (1)
  1. SUTENT [Suspect]
     Indication: METASTATIC RENAL CELL CARCINOMA
     Route: 048
     Dates: start: 20070102, end: 20070117

REACTIONS (3)
  - DYSPNOEA [None]
  - RHABDOMYOLYSIS [None]
  - URINARY RETENTION [None]
